FAERS Safety Report 22090960 (Version 2)
Quarter: 2023Q1

REPORT INFORMATION
  Report Type: Report from Study
  Country: US (occurrence: US)
  Receive Date: 20230314
  Receipt Date: 20230323
  Transmission Date: 20230418
  Serious: Yes (Hospitalization)
  Sender: FDA-Public Use
  Company Number: US-ABBVIE-4338723

PATIENT
  Age: 59 Year
  Sex: Female

DRUGS (2)
  1. DUOPA [Suspect]
     Active Substance: CARBIDOPA\LEVODOPA
     Indication: Parkinson^s disease
     Dosage: 1 CASSETTE VIA PEG-J FOR UP TO 16 HOURS EACH DAY.?MORNING DOSE: 8.8ML (0-8.8ML), CONTINUOUS DOSE:...
     Route: 050
     Dates: start: 20230203, end: 20230227
  2. DUOPA [Suspect]
     Active Substance: CARBIDOPA\LEVODOPA

REACTIONS (3)
  - Urinary tract infection [Unknown]
  - Stoma site infection [Unknown]
  - Device breakage [Unknown]

NARRATIVE: CASE EVENT DATE: 20230305
